FAERS Safety Report 5939242-2 (Version None)
Quarter: 2008Q4

REPORT INFORMATION
  Report Type: 
  Country: None (occurrence: None)
  Receive Date: 20081103
  Receipt Date: 20081024
  Transmission Date: 20090506
  Serious: Yes (Other)
  Sender: FDA-Public Use
  Company Number: US-PFIZER INC-2008075499

PATIENT
  Sex: Male
  Weight: 69.09 kg

DRUGS (2)
  1. LIPITOR [Suspect]
     Indication: BLOOD CHOLESTEROL INCREASED
     Route: 048
     Dates: start: 20040101
  2. PLAVIX [Suspect]
     Indication: AORTIC INJURY
     Dates: start: 20010401, end: 20060401

REACTIONS (4)
  - BLOOD CHOLESTEROL ABNORMAL [None]
  - CHOLESTEROSIS [None]
  - HAEMORRHAGE [None]
  - HEADACHE [None]
